FAERS Safety Report 22092834 (Version 3)
Quarter: 2023Q2

REPORT INFORMATION
  Report Type: Report from Study
  Country: CA (occurrence: CA)
  Receive Date: 20230314
  Receipt Date: 20230405
  Transmission Date: 20230721
  Serious: Yes (Other)
  Sender: FDA-Public Use
  Company Number: CA-JNJFOC-20230208836

PATIENT
  Age: 29 Year
  Sex: Female

DRUGS (1)
  1. REMICADE [Suspect]
     Active Substance: INFLIXIMAB
     Indication: Crohn^s disease
     Dosage: PATIENT RECEIVED LAST DOSE ON 22-FEB-2023, EXPIRATION DATE: 31-JUL-2025, APPOINTMENT PUT 1 WEEK BACK
     Route: 042
     Dates: start: 20200806

REACTIONS (7)
  - Streptococcal urinary tract infection [Unknown]
  - Respiratory tract infection [Unknown]
  - Bacterial vaginosis [Not Recovered/Not Resolved]
  - Vitamin D deficiency [Unknown]
  - Inflammation [Unknown]
  - Therapeutic product effect decreased [Unknown]
  - Diarrhoea [Unknown]

NARRATIVE: CASE EVENT DATE: 20230101
